FAERS Safety Report 9296986 (Version 3)
Quarter: 2013Q3

REPORT INFORMATION
  Report Type: Spontaneous
  Country: US (occurrence: US)
  Receive Date: 20130518
  Receipt Date: 20130820
  Transmission Date: 20140515
  Serious: Yes (Hospitalization, Other)
  Sender: FDA-Public Use
  Company Number: US-BAXTER-2013BAX017790

PATIENT
  Age: 64 Year
  Sex: Female

DRUGS (13)
  1. GAMMAGARD LIQUID [Suspect]
     Indication: UPPER RESPIRATORY TRACT INFECTION
     Route: 065
     Dates: start: 201205
  2. GAMMAGARD LIQUID [Suspect]
     Indication: BRONCHITIS
     Route: 065
     Dates: start: 201206
  3. GAMMAGARD LIQUID [Suspect]
     Indication: SINUSITIS
     Route: 065
     Dates: start: 20120914
  4. GAMMAGARD LIQUID [Suspect]
     Indication: IMMUNODEFICIENCY
     Route: 065
  5. GAMMAGARD LIQUID [Suspect]
     Route: 065
     Dates: start: 2007
  6. PROGRAFT [Concomitant]
     Indication: PROPHYLAXIS AGAINST TRANSPLANT REJECTION
     Route: 065
     Dates: start: 2007
  7. SULFAMETH [Concomitant]
     Indication: ANTIBIOTIC THERAPY
     Route: 065
  8. ACYCLOVIR [Concomitant]
     Indication: PRODUCT USED FOR UNKNOWN INDICATION
     Route: 065
  9. PROTONIX [Concomitant]
     Indication: PRODUCT USED FOR UNKNOWN INDICATION
     Route: 065
  10. POTASSIUM [Concomitant]
     Indication: PRODUCT USED FOR UNKNOWN INDICATION
     Route: 065
  11. SYNTHROID [Concomitant]
     Indication: PRODUCT USED FOR UNKNOWN INDICATION
     Route: 065
  12. FOLIC ACID [Concomitant]
     Indication: PRODUCT USED FOR UNKNOWN INDICATION
     Route: 065
  13. CELLCEPT [Concomitant]
     Indication: PRODUCT USED FOR UNKNOWN INDICATION
     Route: 065
     Dates: start: 2007

REACTIONS (8)
  - Upper respiratory tract infection [Recovered/Resolved]
  - Bronchitis [Recovered/Resolved]
  - Chronic sinusitis [Not Recovered/Not Resolved]
  - Pneumonia [Unknown]
  - Pleural effusion [Not Recovered/Not Resolved]
  - Pericardial effusion [Unknown]
  - Malaise [Recovered/Resolved]
  - Abdominal hernia [Unknown]
